FAERS Safety Report 17657127 (Version 1)
Quarter: 2020Q2

REPORT INFORMATION
  Report Type: Spontaneous
  Country: CA (occurrence: CA)
  Receive Date: 20200410
  Receipt Date: 20200410
  Transmission Date: 20200713
  Serious: Yes (Other)
  Sender: FDA-Public Use
  Company Number: CA-TEVA-2020-CA-1219744

PATIENT
  Age: 71 Year
  Sex: Male
  Weight: 119 kg

DRUGS (13)
  1. HUMALOG [Concomitant]
     Active Substance: INSULIN LISPRO
  2. LANTUS [Concomitant]
     Active Substance: INSULIN GLARGINE
  3. LASIX [Concomitant]
     Active Substance: FUROSEMIDE
  4. DOCUSATE [Concomitant]
     Active Substance: DOCUSATE
  5. SPIRIVA [Concomitant]
     Active Substance: TIOTROPIUM BROMIDE MONOHYDRATE
  6. COUMADIN [Concomitant]
     Active Substance: WARFARIN SODIUM
  7. COVERSYL [PERINDOPRIL ARGININE] [Concomitant]
     Active Substance: PERINDOPRIL ARGININE
  8. PANTOLOC[PANTOPRAZOLE] [Concomitant]
  9. AMLODIPINE BESILATE [Concomitant]
     Active Substance: AMLODIPINE BESYLATE
  10. DIGOXIN. [Concomitant]
     Active Substance: DIGOXIN
  11. GABAPENTIN. [Suspect]
     Active Substance: GABAPENTIN
     Indication: NEUROPATHY PERIPHERAL
     Dosage: 300 MILLIGRAM DAILY;
     Route: 048
  12. HYDROMORPH CONTIN [Concomitant]
     Active Substance: HYDROMORPHONE
  13. METFORMIN [Concomitant]
     Active Substance: METFORMIN HYDROCHLORIDE

REACTIONS (5)
  - Product use in unapproved indication [Recovered/Resolved]
  - Confusional state [Recovered/Resolved]
  - Off label use [Recovered/Resolved]
  - Tremor [Recovered/Resolved]
  - Rash [Recovered/Resolved]
